FAERS Safety Report 13924683 (Version 1)
Quarter: 2017Q3

REPORT INFORMATION
  Report Type: Spontaneous
  Country: CA (occurrence: CA)
  Receive Date: 20170831
  Receipt Date: 20170831
  Transmission Date: 20171127
  Serious: Yes (Other)
  Sender: FDA-Public Use
  Company Number: CA-ASTRAZENECA-2017SE88009

PATIENT
  Age: 56 Year
  Sex: Male

DRUGS (14)
  1. TUDORZA PRESSAIR [Concomitant]
     Active Substance: ACLIDINIUM BROMIDE
     Indication: PRODUCT USED FOR UNKNOWN INDICATION
     Dosage: 1 DOSAGE FORMS, TWICE DAILY
     Route: 065
  2. INDACATEROL MALEATE [Concomitant]
     Active Substance: INDACATEROL MALEATE
     Indication: PRODUCT USED FOR UNKNOWN INDICATION
     Dosage: DAILY
     Route: 065
  3. ACLASTA [Suspect]
     Active Substance: ZOLEDRONIC ACID
     Indication: OSTEOPOROSIS
     Dosage: 5 MG/100 ML, 1 DF, UNKNOWN
     Route: 042
     Dates: start: 20140111
  4. ERGOCALCIFEROL. [Concomitant]
     Active Substance: ERGOCALCIFEROL
     Indication: PRODUCT USED FOR UNKNOWN INDICATION
     Dosage: 2000, DAILY
     Route: 065
     Dates: start: 201306
  5. CALCIUM [Concomitant]
     Active Substance: CALCIUM
     Indication: PRODUCT USED FOR UNKNOWN INDICATION
     Route: 065
     Dates: start: 201306
  6. VITAMIN B12 [Concomitant]
     Active Substance: CYANOCOBALAMIN
     Indication: PRODUCT USED FOR UNKNOWN INDICATION
     Route: 065
  7. DAXAS [Suspect]
     Active Substance: ROFLUMILAST
     Route: 048
  8. SINGULAIR [Suspect]
     Active Substance: MONTELUKAST SODIUM
     Indication: PRODUCT USED FOR UNKNOWN INDICATION
     Route: 065
  9. OXYCODONE [Concomitant]
     Active Substance: OXYCODONE
     Indication: PRODUCT USED FOR UNKNOWN INDICATION
     Route: 065
  10. RAMIPRIL. [Concomitant]
     Active Substance: RAMIPRIL
     Indication: PRODUCT USED FOR UNKNOWN INDICATION
     Route: 065
  11. TUDORZA PRESSAIR [Concomitant]
     Active Substance: ACLIDINIUM BROMIDE
     Indication: PRODUCT USED FOR UNKNOWN INDICATION
     Dosage: THREE TIMES A DAY
     Route: 065
  12. ACLASTA [Suspect]
     Active Substance: ZOLEDRONIC ACID
     Indication: OSTEOPOROSIS
     Dosage: 5 MG/100 ML, 1 DF, UNKNOWN
     Route: 042
     Dates: start: 201410
  13. SYMBICORT [Concomitant]
     Active Substance: BUDESONIDE\FORMOTEROL FUMARATE DIHYDRATE
     Indication: PRODUCT USED FOR UNKNOWN INDICATION
     Dosage: 2 DOSAGE FORMS, TWICE DAILY
     Route: 065
  14. THEOPHYLLINE [Concomitant]
     Active Substance: THEOPHYLLINE ANHYDROUS
     Indication: PRODUCT USED FOR UNKNOWN INDICATION
     Route: 065

REACTIONS (17)
  - Osteoarthritis [Unknown]
  - Creatinine renal clearance increased [Unknown]
  - Kyphosis [Unknown]
  - Osteoporosis [Unknown]
  - Lumbar vertebral fracture [Recovered/Resolved]
  - Vitamin D decreased [Unknown]
  - Drug intolerance [Unknown]
  - Bone density decreased [Recovered/Resolved]
  - Lordosis [Unknown]
  - Chest discomfort [Unknown]
  - Inappropriate schedule of drug administration [Unknown]
  - Aortic arteriosclerosis [Unknown]
  - Blood pressure increased [Unknown]
  - Compression fracture [Recovered/Resolved]
  - Osteoporotic fracture [Recovered/Resolved]
  - Rib fracture [Unknown]
  - Vitamin D increased [Unknown]

NARRATIVE: CASE EVENT DATE: 201306
